FAERS Safety Report 12515292 (Version 3)
Quarter: 2017Q3

REPORT INFORMATION
  Report Type: Spontaneous
  Country: IT (occurrence: IT)
  Receive Date: 20160630
  Receipt Date: 20170728
  Transmission Date: 20171127
  Serious: Yes (Death, Hospitalization)
  Sender: FDA-Public Use
  Company Number: IT-TEVA-672600ACC

PATIENT
  Age: 82 Year
  Sex: Female

DRUGS (10)
  1. VANCOMYCIN [Interacting]
     Active Substance: VANCOMYCIN
     Indication: SKIN INFECTION
     Dosage: 1 GRAM DAILY; 1 G AS LOADING DOSE, THEN 500 MG
     Route: 042
     Dates: start: 20150521, end: 20150521
  2. FENTANYL. [Interacting]
     Active Substance: FENTANYL
     Route: 062
     Dates: start: 20150528, end: 20150602
  3. RIFAMPICIN [Interacting]
     Active Substance: RIFAMPIN
     Indication: STAPHYLOCOCCAL INFECTION
     Dosage: 300 MILLIGRAM DAILY; 300 MG / DAY
     Route: 042
     Dates: start: 20150521
  4. FENTANYL. [Interacting]
     Active Substance: FENTANYL
     Indication: PROCEDURAL PAIN
     Dosage: INCREASED PATCH DOSAGE TO 25 MCG / H
     Route: 062
  5. FENTANYL. [Interacting]
     Active Substance: FENTANYL
     Route: 048
     Dates: start: 20150602, end: 20150602
  6. FENTANYL. [Suspect]
     Active Substance: FENTANYL
     Indication: ISCHAEMIC LIMB PAIN
     Dosage: 12 MCG / H
     Route: 062
     Dates: start: 20150521
  7. FENTANYL. [Interacting]
     Active Substance: FENTANYL
     Route: 062
     Dates: start: 20150521, end: 20150527
  8. LEVOFLOXACIN. [Interacting]
     Active Substance: LEVOFLOXACIN
     Indication: STAPHYLOCOCCAL INFECTION
     Dosage: 125 MILLIGRAM DAILY;
     Route: 048
     Dates: start: 20150522
  9. LEVOFLOXACIN. [Interacting]
     Active Substance: LEVOFLOXACIN
     Indication: INFECTION
     Dosage: 500 MILLIGRAM DAILY;
     Route: 048
     Dates: start: 20150521, end: 20150521
  10. VANCOMYCIN [Interacting]
     Active Substance: VANCOMYCIN
     Indication: STAPHYLOCOCCAL INFECTION
     Route: 042
     Dates: start: 20150522

REACTIONS (10)
  - Hallucination [Recovered/Resolved]
  - Somnolence [Recovered/Resolved]
  - Status epilepticus [Recovered/Resolved]
  - Drug interaction [Fatal]
  - Tremor [Unknown]
  - Miosis [Unknown]
  - Generalised non-convulsive epilepsy [Fatal]
  - Product use in unapproved indication [Unknown]
  - Prescribed overdose [Fatal]
  - Altered state of consciousness [Recovered/Resolved]
